FAERS Safety Report 13398627 (Version 1)
Quarter: 2017Q2

REPORT INFORMATION
  Report Type: Spontaneous
  Country: US (occurrence: US)
  Receive Date: 20170403
  Receipt Date: 20170403
  Transmission Date: 20170830
  Serious: No
  Sender: FDA-Public Use
  Company Number: US-BIOMARINAP-US-2017-113427

PATIENT
  Age: 14 Year
  Sex: Male

DRUGS (1)
  1. KUVAN [Suspect]
     Active Substance: SAPROPTERIN DIHYDROCHLORIDE
     Indication: PHENYLKETONURIA
     Dosage: UNK, QD
     Route: 065

REACTIONS (5)
  - Dizziness [Unknown]
  - Headache [Unknown]
  - Flatulence [Unknown]
  - Tremor [Unknown]
  - Nausea [Unknown]
